FAERS Safety Report 9331382 (Version 1)
Quarter: 2013Q2

REPORT INFORMATION
  Report Type: Spontaneous
  Country: BR (occurrence: BR)
  Receive Date: 20130605
  Receipt Date: 20130605
  Transmission Date: 20140414
  Serious: Yes (Other)
  Sender: FDA-Public Use
  Company Number: PHHY2013BR056502

PATIENT
  Sex: Female

DRUGS (2)
  1. TRILEPTAL / GP 47680 / TRI 476B [Suspect]
     Dosage: 600 MG, BID
     Route: 048
  2. TRILEPTAL / GP 47680 / TRI 476B [Suspect]
     Dosage: 900 MG, DAILY
     Route: 048

REACTIONS (3)
  - Hypoaesthesia oral [Not Recovered/Not Resolved]
  - Saliva altered [Not Recovered/Not Resolved]
  - Malaise [Unknown]
